FAERS Safety Report 8418981-8 (Version None)
Quarter: 2012Q2

REPORT INFORMATION
  Report Type: 
  Country: None (occurrence: None)
  Receive Date: 20120607
  Receipt Date: 20120604
  Transmission Date: 20120825
  Serious: Yes (Hospitalization)
  Sender: FDA-Public Use
  Company Number: PHHO2012SE004802

PATIENT
  Sex: Female
  Weight: 61 kg

DRUGS (9)
  1. AFINITOR [Suspect]
     Indication: PANCREATIC NEUROENDOCRINE TUMOUR
     Dosage: 5 MG, QD
     Dates: start: 20111019, end: 20120124
  2. TOLTERODINE TARTRATE [Concomitant]
     Indication: URINARY INCONTINENCE
     Dosage: 1 MG, QD
     Route: 048
     Dates: start: 20110612
  3. AFINITOR [Suspect]
     Dosage: 10 MG, QD
     Dates: start: 20120125, end: 20120321
  4. CITALOPRAM HYDROBROMIDE [Concomitant]
     Indication: DEPRESSION
     Dosage: 20 MG, QD
     Route: 048
     Dates: start: 19980101
  5. IRON SUPPLEMENTS [Concomitant]
     Indication: ANAEMIA
     Dosage: 100 MG, BID
     Route: 048
     Dates: start: 20110609
  6. SODIUM CARBONATE [Concomitant]
     Indication: RENAL FAILURE
     Dosage: 1 G, BID
     Route: 048
     Dates: start: 20110825
  7. AFINITOR [Suspect]
     Dosage: 5 MG, QD
     Route: 048
     Dates: end: 20120602
  8. ENALAPRIL MALEATE [Concomitant]
     Indication: HYPERTENSION
     Dosage: 2.5 MG, BID
     Route: 048
     Dates: start: 20111027
  9. LAMOTRIGINE [Concomitant]
     Indication: EPILEPSY
     Dosage: 25 MG, UNK
     Route: 048
     Dates: start: 20111205

REACTIONS (4)
  - NAUSEA [None]
  - VOMITING [None]
  - ABDOMINAL PAIN [None]
  - GASTROINTESTINAL OEDEMA [None]
